FAERS Safety Report 4269800-5 (Version None)
Quarter: 2004Q1

REPORT INFORMATION
  Report Type: 
  Country: None (occurrence: None)
  Receive Date: 20040113
  Receipt Date: 20040107
  Transmission Date: 20041129
  Serious: Yes (Hospitalization)
  Sender: FDA-Public Use
  Company Number: 04-01-0015

PATIENT
  Age: 49 Year
  Sex: Male

DRUGS (1)
  1. PROBENECID W/ COLCHICINE [Suspect]
     Dosage: 0.6 MG QD ORAL
     Route: 048

REACTIONS (9)
  - ALANINE AMINOTRANSFERASE INCREASED [None]
  - ASPARTATE AMINOTRANSFERASE INCREASED [None]
  - BLOOD CREATINE PHOSPHOKINASE INCREASED [None]
  - HAEMATOCRIT DECREASED [None]
  - HAEMODIALYSIS [None]
  - HAEMOGLOBIN DECREASED [None]
  - MYOPATHY [None]
  - PERIPHERAL SENSORY NEUROPATHY [None]
  - URAEMIC NEUROPATHY [None]
